FAERS Safety Report 9400376 (Version 1)
Quarter: 2013Q3

REPORT INFORMATION
  Report Type: Spontaneous
  Country: JP (occurrence: JP)
  Receive Date: 20130715
  Receipt Date: 20130715
  Transmission Date: 20140515
  Serious: Yes (Hospitalization)
  Sender: FDA-Public Use
  Company Number: JP-MYLANLABS-2013S1014809

PATIENT
  Age: 82 Year
  Sex: Female

DRUGS (4)
  1. TRAMADOL [Suspect]
     Indication: BACK PAIN
     Dosage: 37.5MG X 3
     Route: 065
  2. BUPRENORPHINE [Suspect]
     Indication: BACK PAIN
     Dosage: 5MG, THEN INCREASED TO 10MG
     Route: 062
  3. BUPRENORPHINE [Suspect]
     Indication: BACK PAIN
     Dosage: 10MG
     Route: 062
  4. PARACETAMOL [Concomitant]
     Indication: BACK PAIN
     Dosage: 325MG
     Route: 065

REACTIONS (2)
  - Delirium [Recovering/Resolving]
  - Nausea [Unknown]
